APPROVED DRUG PRODUCT: NIACIN
Active Ingredient: NIACIN
Strength: 1GM
Dosage Form/Route: TABLET, EXTENDED RELEASE;ORAL
Application: A204934 | Product #002 | TE Code: AB
Applicant: MACLEODS PHARMACEUTICALS LTD
Approved: Mar 3, 2022 | RLD: No | RS: No | Type: RX